FAERS Safety Report 20721264 (Version 1)
Quarter: 2022Q2

REPORT INFORMATION
  Report Type: Spontaneous
  Country: US (occurrence: None)
  Receive Date: 20220418
  Receipt Date: 20220418
  Transmission Date: 20220721
  Serious: Yes (Death)
  Sender: FDA-Public Use
  Company Number: None

PATIENT
  Age: 80 Year
  Sex: Male
  Weight: 78.47 kg

DRUGS (15)
  1. TAFINLAR [Suspect]
     Active Substance: DABRAFENIB MESYLATE
     Indication: Hepatic cancer
     Dosage: 2 CAPS Q 12 HOURS ORAL?
     Route: 048
     Dates: start: 20220226, end: 20220323
  2. MEKINIST [Suspect]
     Active Substance: TRAMETINIB DIMETHYL SULFOXIDE
     Indication: Hepatic cancer
     Dosage: 2 TABS ONCE DAILY ORAL?
     Route: 048
     Dates: start: 20220226, end: 20220323
  3. ALBUTEROL SULFATE [Concomitant]
     Active Substance: ALBUTEROL SULFATE
  4. COVID19 [Concomitant]
  5. ELIQUIS [Concomitant]
     Active Substance: APIXABAN
  6. OMEPRAZOLE [Concomitant]
     Active Substance: OMEPRAZOLE
  7. ONDANSETRON [Concomitant]
     Active Substance: ONDANSETRON
  8. OXYCODONE IMMEDIATE REL [Concomitant]
  9. ZOLPIDEM [Concomitant]
     Active Substance: ZOLPIDEM TARTRATE
  10. AMBIEN [Concomitant]
     Active Substance: ZOLPIDEM TARTRATE
  11. FERROUS SULFATE [Concomitant]
     Active Substance: FERROUS SULFATE
  12. HYOSCYAMINE [Concomitant]
     Active Substance: HYOSCYAMINE
  13. PREDNISONE [Concomitant]
     Active Substance: PREDNISONE
  14. SYNTHROID [Concomitant]
     Active Substance: LEVOTHYROXINE SODIUM
  15. OXYCONTIN [Concomitant]
     Active Substance: OXYCODONE HYDROCHLORIDE

REACTIONS (6)
  - Cough [None]
  - Ascites [None]
  - Diffuse alveolar damage [None]
  - Pneumonia [None]
  - Fluid retention [None]
  - Cardiovascular disorder [None]
